FAERS Safety Report 8428572-0 (Version None)
Quarter: 2012Q2

REPORT INFORMATION
  Report Type: 
  Country: None (occurrence: None)
  Receive Date: 20120612
  Receipt Date: 20120607
  Transmission Date: 20120825
  Serious: No
  Sender: FDA-Public Use
  Company Number: US-PFIZER INC-2012137332

PATIENT
  Sex: Female

DRUGS (5)
  1. METFORMIN HCL [Suspect]
     Dosage: UNK
  2. HYDROCODONE [Suspect]
     Dosage: UNK
  3. VESICARE [Suspect]
     Indication: HYPERTONIC BLADDER
     Dosage: 5 MG, 1X/DAY
     Route: 048
     Dates: start: 20120510
  4. LISINOPRIL [Suspect]
     Dosage: UNK
  5. NEURONTIN [Suspect]
     Dosage: UNK

REACTIONS (1)
  - DRY MOUTH [None]
